FAERS Safety Report 6087677-2 (Version None)
Quarter: 2009Q1

REPORT INFORMATION
  Report Type: 
  Country: None (occurrence: None)
  Receive Date: 20090223
  Receipt Date: 20090209
  Transmission Date: 20090719
  Serious: Yes (Hospitalization)
  Sender: FDA-Public Use
  Company Number: IR-ROCHE-613306

PATIENT
  Age: 28 Year
  Sex: Male

DRUGS (2)
  1. PEGASYS [Suspect]
     Route: 065
     Dates: start: 20090201, end: 20090201
  2. COPEGUS [Suspect]
     Route: 065
     Dates: start: 20090201, end: 20090201

REACTIONS (1)
  - SYNCOPE [None]
